FAERS Safety Report 7053931-0 (Version None)
Quarter: 2010Q4

REPORT INFORMATION
  Report Type: 
  Country: None (occurrence: None)
  Receive Date: 20101013
  Receipt Date: 20101004
  Transmission Date: 20110411
  Serious: Yes (Death, Other)
  Sender: FDA-Public Use
  Company Number: 2010SP052366

PATIENT
  Age: 29 Year
  Sex: Male

DRUGS (2)
  1. TESTOSTERONE [Suspect]
     Indication: DRUG ABUSE
  2. NANDROLONE DECANOATE [Suspect]
     Indication: DRUG ABUSE

REACTIONS (5)
  - CIRCULATORY COLLAPSE [None]
  - DRUG ABUSE [None]
  - HAEMORRHAGE [None]
  - LUNG DISORDER [None]
  - VASCULAR PURPURA [None]
